FAERS Safety Report 8321876-1 (Version None)
Quarter: 2012Q2

REPORT INFORMATION
  Report Type: 
  Country: None (occurrence: None)
  Receive Date: 20120430
  Receipt Date: 20120424
  Transmission Date: 20120825
  Serious: Yes (Other)
  Sender: FDA-Public Use
  Company Number: JP-GLAXOSMITHKLINE-B0798318A

PATIENT
  Sex: Female

DRUGS (2)
  1. ALASE [Concomitant]
     Route: 061
     Dates: start: 20120421
  2. VALTREX [Suspect]
     Indication: HERPES SIMPLEX
     Dosage: 1000MG PER DAY
     Route: 048
     Dates: start: 20120421, end: 20120422

REACTIONS (4)
  - DEAFNESS UNILATERAL [None]
  - HEADACHE [None]
  - MALAISE [None]
  - ABDOMINAL PAIN UPPER [None]
